FAERS Safety Report 9403161 (Version 2)
Quarter: 2014Q3

REPORT INFORMATION
  Report Type: Spontaneous
  Country: DK (occurrence: DK)
  Receive Date: 20130716
  Receipt Date: 20140714
  Transmission Date: 20150326
  Serious: Yes (Death, Hospitalization)
  Sender: FDA-Public Use
  Company Number: DK-GLAXOSMITHKLINE-B0907692A

PATIENT
  Sex: Male

DRUGS (4)
  1. ZINACEF [Suspect]
     Active Substance: CEFUROXIME SODIUM
     Indication: INFECTION
     Route: 042
     Dates: start: 20120130, end: 20120224
  2. FENYTOIN [Suspect]
     Active Substance: PHENYTOIN
     Indication: PRODUCT USED FOR UNKNOWN INDICATION
     Route: 065
  3. DICILLIN [Suspect]
     Active Substance: DICLOXACILLIN SODIUM
     Indication: INFECTION
     Dosage: 500MG THREE TIMES PER DAY
     Route: 048
     Dates: start: 20120119
  4. CIPROFLOXACIN. [Suspect]
     Active Substance: CIPROFLOXACIN
     Indication: INFECTION
     Dosage: 500MG TWICE PER DAY
     Route: 048
     Dates: start: 20120119

REACTIONS (1)
  - General physical health deterioration [Fatal]
